FAERS Safety Report 6441382 (Version 2)
Quarter: 2012Q4

REPORT INFORMATION
  Report Type: 
  Country: BE (occurrence: BE)
  Receive Date: 20071012
  Receipt Date: 20121218
  Transmission Date: 20130627
  Serious: Yes (Other)
  Sender: FDA-Public Use
  Company Number: BE-RANBAXY-2007US-10554

PATIENT
  Age: 54 Year
  Sex: Male

DRUGS (3)
  1. VERAPAMIL [Suspect]
     Indication: HYPERTROPHIC CARDIOMYOPATHY
     Dosage: 360 mg/day
     Route: 065
  2. METOPROLOL [Suspect]
     Indication: HYPERTROPHIC CARDIOMYOPATHY
     Dosage: 200 mg/day
     Route: 005
  3. WARFARIN [Concomitant]
     Indication: ANTICOAGULANT THERAPY
     Dosage: UNK
     Route: 065

REACTIONS (3)
  - Drug resistance [Unknown]
  - Atrial fibrillation [Recovered/Resolved]
  - Cardiac failure [Unknown]
